FAERS Safety Report 5886858-8 (Version None)
Quarter: 2008Q3

REPORT INFORMATION
  Report Type: 
  Country: None (occurrence: None)
  Receive Date: 20080917
  Receipt Date: 20080905
  Transmission Date: 20090109
  Serious: Yes (Hospitalization)
  Sender: FDA-Public Use
  Company Number: US-ELI_LILLY_AND_COMPANY-US200809001335

PATIENT
  Sex: Female

DRUGS (2)
  1. FORTEO [Suspect]
     Dates: start: 20080301, end: 20080401
  2. VITAMIN D [Concomitant]
     Dosage: 50000 U, WEEKLY (1/W)
     Dates: end: 20080401

REACTIONS (4)
  - ASTHENIA [None]
  - HYPERCALCAEMIA [None]
  - HYPOTENSION [None]
  - MENTAL STATUS CHANGES [None]
